FAERS Safety Report 11913742 (Version 2)
Quarter: 2016Q2

REPORT INFORMATION
  Report Type: Spontaneous
  Country: US (occurrence: US)
  Receive Date: 20160113
  Receipt Date: 20160414
  Transmission Date: 20160815
  Serious: No
  Sender: FDA-Public Use
  Company Number: US-BAYER-2016-006249

PATIENT
  Sex: Female

DRUGS (9)
  1. BETASERON [Suspect]
     Active Substance: INTERFERON BETA-1B
     Indication: MULTIPLE SCLEROSIS
     Dosage: 0.25 MG, QOD
     Route: 058
  2. KEPPRA [Concomitant]
     Active Substance: LEVETIRACETAM
  3. DICLOFENAC SODIUM ER [Concomitant]
     Active Substance: DICLOFENAC SODIUM
  4. FLEXERIL [Concomitant]
     Active Substance: CYCLOBENZAPRINE HYDROCHLORIDE
  5. XANAX [Concomitant]
     Active Substance: ALPRAZOLAM
  6. VITAMIN D [Concomitant]
     Active Substance: CHOLECALCIFEROL
  7. LISINOPRIL. [Concomitant]
     Active Substance: LISINOPRIL
  8. PRILOSEC [Concomitant]
     Active Substance: OMEPRAZOLE MAGNESIUM
  9. MOBIC [Concomitant]
     Active Substance: MELOXICAM

REACTIONS (5)
  - Fatigue [None]
  - Activities of daily living impaired [None]
  - Lethargy [None]
  - Depressed mood [None]
  - Decreased interest [None]
